FAERS Safety Report 7563837-6 (Version None)
Quarter: 2011Q2

REPORT INFORMATION
  Report Type: 
  Country: None (occurrence: None)
  Receive Date: 20110622
  Receipt Date: 20110615
  Transmission Date: 20111010
  Serious: Yes (Hospitalization, Other)
  Sender: FDA-Public Use
  Company Number: US-CELGENEUS-163-21880-11051628

PATIENT
  Sex: Female

DRUGS (16)
  1. LOVENOX [Concomitant]
     Dosage: 100 MILLIGRAM
     Route: 065
  2. EFFEXOR [Concomitant]
     Dosage: 75 MILLIGRAM
     Route: 065
  3. REVLIMID [Suspect]
     Indication: MULTIPLE MYELOMA
     Dosage: 5 MILLIGRAM
     Route: 048
     Dates: start: 20101020
  4. FERROUS SULFATE TAB [Concomitant]
     Route: 065
  5. DURAGESIC-100 [Concomitant]
     Dosage: 50 MICROGRAM
     Route: 061
  6. METOPROLOL TARTRATE [Concomitant]
     Dosage: 25 MILLIGRAM
     Route: 065
  7. NEPHROCAPS [Concomitant]
     Route: 065
  8. ZOFRAN [Concomitant]
     Dosage: 4 MILLIGRAM
     Route: 065
  9. NORVASC [Concomitant]
     Dosage: 5 MILLIGRAM
     Route: 065
  10. DILANTIN [Concomitant]
     Dosage: 200MG-300MG
     Route: 065
  11. NORCO [Concomitant]
     Dosage: 5/325MG
     Route: 065
  12. SEVELAMER [Concomitant]
     Dosage: 800 MILLIGRAM
     Route: 065
  13. OMEPRAZOLE [Concomitant]
     Dosage: 20 MILLIGRAM
     Route: 065
  14. COMPAZINE [Concomitant]
     Indication: NAUSEA
     Dosage: 10 MILLIGRAM
     Route: 065
  15. EPOGEN [Concomitant]
     Dosage: 21,000 UNITS
     Route: 065
  16. DECADRON [Concomitant]
     Route: 065

REACTIONS (4)
  - ESCHERICHIA SEPSIS [None]
  - DEVICE RELATED INFECTION [None]
  - BLOOD HUMAN CHORIONIC GONADOTROPIN INCREASED [None]
  - THROMBOCYTOPENIA [None]
